FAERS Safety Report 15507032 (Version 2)
Quarter: 2019Q1

REPORT INFORMATION
  Report Type: Spontaneous
  Country: PT (occurrence: PT)
  Receive Date: 20181016
  Receipt Date: 20190115
  Transmission Date: 20190417
  Serious: Yes (Hospitalization)
  Sender: FDA-Public Use
  Company Number: PHHY2018PT122364

PATIENT
  Age: 57 Year
  Sex: Female

DRUGS (5)
  1. BROMAZEPAM [Suspect]
     Active Substance: BROMAZEPAM
     Route: 048
  2. DOSULEPIN HYDROCHLORIDE [Suspect]
     Active Substance: DOTHIEPIN HYDROCHLORIDE
     Indication: MENTAL DISORDER
     Dosage: UNK
     Route: 065
  3. OMEPRAZOLE. [Suspect]
     Active Substance: OMEPRAZOLE
     Indication: GASTRITIS
     Dosage: UNK
     Route: 065
  4. CYAMEMAZINE [Suspect]
     Active Substance: CYAMEMAZINE
     Indication: MENTAL DISORDER
     Dosage: UNK
     Route: 065
  5. BROMAZEPAM [Suspect]
     Active Substance: BROMAZEPAM
     Indication: MENTAL DISORDER
     Dosage: UNK
     Route: 065

REACTIONS (2)
  - Toxicity to various agents [Recovering/Resolving]
  - Drug abuse [Unknown]
